FAERS Safety Report 10300857 (Version 2)
Quarter: 2014Q3

REPORT INFORMATION
  Report Type: Other
  Country: DE (occurrence: DE)
  Receive Date: 20140714
  Receipt Date: 20140714
  Transmission Date: 20150326
  Serious: Yes (Life-Threatening, Hospitalization)
  Sender: FDA-Public Use
  Company Number: DE-LUPIN PHARMACEUTICALS INC.-E2B_00002044

PATIENT
  Age: 52 Year
  Sex: Male
  Weight: 87 kg

DRUGS (7)
  1. KATADOLON S LONG [Suspect]
     Active Substance: FLUPIRTINE
     Indication: RADICULOPATHY
     Route: 048
     Dates: start: 20131011, end: 20140120
  2. VENLAFAXINE [Suspect]
     Active Substance: VENLAFAXINE HYDROCHLORIDE
     Indication: DEPRESSION
     Route: 048
     Dates: end: 20131008
  3. PANTOZOL [Suspect]
     Active Substance: PANTOPRAZOLE SODIUM
     Indication: DEPRESSION
     Route: 048
     Dates: start: 20131009, end: 20140120
  4. AMITRIPTYLIN RET. [Suspect]
     Active Substance: AMITRIPTYLINE
     Indication: GASTROOESOPHAGEAL REFLUX DISEASE
     Route: 048
     Dates: start: 20131011, end: 20140120
  5. NEURO-AS [Concomitant]
     Active Substance: CYANOCOBALAMIN\PYRIDOXAMINE HYDROCHLORIDE\THIAMINE HYDROCHLORIDE
     Indication: PRODUCT USED FOR UNKNOWN INDICATION
     Route: 048
  6. VENLAFAXINE [Suspect]
     Active Substance: VENLAFAXINE HYDROCHLORIDE
     Route: 048
     Dates: start: 20131009, end: 20140120
  7. QUETIAPINE [Suspect]
     Active Substance: QUETIAPINE
     Indication: DEPRESSION
     Route: 048
     Dates: start: 20131011, end: 20140121

REACTIONS (4)
  - Hepatic enzyme increased [Recovered/Resolved]
  - General physical health deterioration [Recovered/Resolved]
  - Diarrhoea [Recovered/Resolved]
  - Abdominal discomfort [Recovered/Resolved]

NARRATIVE: CASE EVENT DATE: 201401
